FAERS Safety Report 5961450-5 (Version None)
Quarter: 2008Q4

REPORT INFORMATION
  Report Type: 
  Country: None (occurrence: None)
  Receive Date: 20081119
  Receipt Date: 20081104
  Transmission Date: 20090506
  Serious: Yes (Other)
  Sender: FDA-Public Use
  Company Number: 2008US002524

PATIENT
  Age: 52 Year
  Sex: Female
  Weight: 99.8 kg

DRUGS (3)
  1. AMEVIVE [Suspect]
     Indication: PSORIASIS
     Dosage: 15 MG, WEEKLY, INTRAMUSCULAR
     Route: 030
     Dates: start: 20050205, end: 20060502
  2. LISINOPRIL/HYDROCHLOROTHIAZIDE (LISINOPRIL) [Concomitant]
  3. ATENOLOL [Concomitant]

REACTIONS (1)
  - TYPE 2 DIABETES MELLITUS [None]
